FAERS Safety Report 4982639-8 (Version None)
Quarter: 2006Q2

REPORT INFORMATION
  Report Type: 
  Country: None (occurrence: None)
  Receive Date: 20060425
  Receipt Date: 20060330
  Transmission Date: 20061013
  Serious: Yes (Other)
  Sender: FDA-Public Use
  Company Number: FR-ABBOTT-06P-056-0329778-00

PATIENT
  Sex: Male
  Weight: 60 kg

DRUGS (5)
  1. HUMIRA [Suspect]
     Indication: RHEUMATOID ARTHRITIS
     Route: 058
     Dates: start: 20060317, end: 20060317
  2. PREDNISONE [Concomitant]
     Indication: RHEUMATOID ARTHRITIS
     Route: 048
     Dates: start: 20030801
  3. METHOTREXATE [Concomitant]
     Indication: RHEUMATOID ARTHRITIS
     Route: 048
     Dates: start: 20040201
  4. LANSOPRAZOLE [Concomitant]
     Indication: GASTROOESOPHAGEAL REFLUX PROPHYLAXIS
     Route: 048
     Dates: start: 20030101
  5. KETOPROFEN [Concomitant]
     Indication: RENAL COLIC
     Route: 048
     Dates: start: 20060317, end: 20060317

REACTIONS (4)
  - BLINDNESS TRANSIENT [None]
  - BURNING SENSATION [None]
  - EYE PAIN [None]
  - FEELING ABNORMAL [None]
